FAERS Safety Report 4441003-0 (Version None)
Quarter: 2004Q3

REPORT INFORMATION
  Report Type: 
  Country: None (occurrence: None)
  Receive Date: 20040901
  Receipt Date: 20040901
  Transmission Date: 20050211
  Serious: Yes (Disabling)
  Sender: FDA-Public Use
  Company Number: None

PATIENT
  Age: 32 Year
  Sex: Female
  Weight: 68.0396 kg

DRUGS (1)
  1. CHYMOPAPAIN [Suspect]
     Indication: INTERVERTEBRAL DISC PROTRUSION
     Dosage: 2 INJECT
     Dates: start: 19861010, end: 19861010

REACTIONS (3)
  - INTERVERTEBRAL DISC PROTRUSION [None]
  - PAIN [None]
  - PHARMACEUTICAL PRODUCT COMPLAINT [None]
